FAERS Safety Report 21754083 (Version 2)
Quarter: 2022Q4

REPORT INFORMATION
  Report Type: Report from Study
  Country: KR (occurrence: KR)
  Receive Date: 20221220
  Receipt Date: 20221222
  Transmission Date: 20230112
  Serious: Yes (Hospitalization)
  Sender: FDA-Public Use
  Company Number: KR-BEIGENE-BGN-2021-003404

PATIENT
  Age: 76 Year
  Sex: Male
  Weight: 66 kg

DRUGS (10)
  1. TISLELIZUMAB [Suspect]
     Active Substance: TISLELIZUMAB
     Indication: Non-small cell lung cancer
     Dosage: 200 MILLIGRAM, Q3WK
     Route: 042
     Dates: start: 20210526, end: 20210826
  2. OCIPERLIMAB [Suspect]
     Active Substance: OCIPERLIMAB
     Indication: Non-small cell lung cancer
     Dosage: 900 MILLIGRAM, Q3WK
     Route: 042
     Dates: start: 20210526, end: 20210826
  3. PACLITAXEL [Suspect]
     Active Substance: PACLITAXEL
     Indication: Non-small cell lung cancer
     Dosage: 247 MG, Q3W
     Route: 042
     Dates: start: 20210526, end: 20210826
  4. LEVODROPROPIZINE [Concomitant]
     Active Substance: LEVODROPROPIZINE
     Indication: Cough
     Dosage: 60 MILLIGRAM, TID
     Route: 048
     Dates: start: 20210709
  5. MINOCIN [Concomitant]
     Active Substance: MINOCYCLINE HYDROCHLORIDE
     Indication: Pruritus
     Dosage: 50 MG, BID
     Route: 048
     Dates: start: 20210709
  6. ACETYLCYSTEINE [Concomitant]
     Active Substance: ACETYLCYSTEINE
     Indication: Cough
     Dosage: 200 MG, TID
     Route: 048
     Dates: start: 20210709
  7. PLOKON [Concomitant]
     Indication: Pruritus
     Dosage: 3 MILLIGRAM, TID
     Route: 048
     Dates: start: 20210709
  8. TYLENOL [Concomitant]
     Active Substance: ACETAMINOPHEN
     Indication: Pain
     Dosage: 650 MG, TID
     Route: 048
     Dates: start: 20210709
  9. XARELTO [Concomitant]
     Active Substance: RIVAROXABAN
     Indication: Superior vena cava syndrome
     Dosage: 20 MG, QD
     Route: 048
     Dates: start: 20210727
  10. NALOXONE HYDROCHLORIDE\OXYCODONE HYDROCHLORIDE [Concomitant]
     Active Substance: NALOXONE HYDROCHLORIDE\OXYCODONE HYDROCHLORIDE
     Indication: Arthralgia
     Dosage: 1 TABLET, BID
     Route: 048
     Dates: start: 20210803

REACTIONS (1)
  - Immune-mediated lung disease [Recovered/Resolved]

NARRATIVE: CASE EVENT DATE: 20210805
